FAERS Safety Report 13637423 (Version 2)
Quarter: 2017Q2

REPORT INFORMATION
  Report Type: Spontaneous
  Country: FI (occurrence: FI)
  Receive Date: 20170609
  Receipt Date: 20170622
  Transmission Date: 20170830
  Serious: Yes (Other)
  Sender: FDA-Public Use
  Company Number: FI-ELI_LILLY_AND_COMPANY-FI201705011615

PATIENT
  Age: 70 Year
  Sex: Female

DRUGS (2)
  1. TRULICITY [Suspect]
     Active Substance: DULAGLUTIDE
     Indication: PRODUCT USED FOR UNKNOWN INDICATION
     Dosage: 0.75 MG, UNKNOWN
     Route: 065
     Dates: start: 201704
  2. TRULICITY [Suspect]
     Active Substance: DULAGLUTIDE
     Dosage: 1.5 MG, UNKNOWN
     Route: 065
     Dates: start: 20170608

REACTIONS (27)
  - Blood glucose decreased [Recovered/Resolved]
  - Eating disorder [Unknown]
  - Blood glucose increased [Recovered/Resolved]
  - Vomiting [Unknown]
  - Arrhythmia [Unknown]
  - Dyspnoea [Unknown]
  - Peripheral swelling [Unknown]
  - Swelling face [Unknown]
  - Skin wrinkling [Unknown]
  - Peripheral coldness [Unknown]
  - Dysgeusia [Recovered/Resolved]
  - Decreased appetite [Unknown]
  - Coronary artery disease [Unknown]
  - White blood cell count increased [Unknown]
  - Body temperature decreased [Unknown]
  - Nausea [Unknown]
  - Inflammatory marker increased [Unknown]
  - Visual impairment [Unknown]
  - Body temperature increased [Unknown]
  - Erythema [Unknown]
  - Appetite disorder [Unknown]
  - Feeling abnormal [Unknown]
  - Dry skin [Unknown]
  - Headache [Unknown]
  - Micturition disorder [Unknown]
  - Abdominal pain upper [Unknown]
  - Fatigue [Unknown]

NARRATIVE: CASE EVENT DATE: 201704
